FAERS Safety Report 9067343 (Version 1)
Quarter: 2013Q1

REPORT INFORMATION
  Report Type: Spontaneous
  Country: US (occurrence: US)
  Receive Date: 20130214
  Receipt Date: 20130214
  Transmission Date: 20140127
  Serious: Yes (Other)
  Sender: FDA-Public Use
  Company Number: US-BAYER-2013-017536

PATIENT
  Age: 75 Year
  Sex: Male
  Weight: 122 kg

DRUGS (6)
  1. PHILLIPS^ MILK OF MAGNESIA [Suspect]
     Indication: CONSTIPATION
     Dosage: 2 TBSP, UNK
     Route: 048
  2. HUMALOG [Concomitant]
  3. ADVAIR [Concomitant]
  4. VITAMIN D [Concomitant]
  5. FISH OIL [Concomitant]
  6. SPIRIVA [Concomitant]

REACTIONS (7)
  - Blood glucose increased [None]
  - Dizziness [Recovered/Resolved]
  - Expired drug administered [None]
  - Nervousness [Not Recovered/Not Resolved]
  - Balance disorder [Not Recovered/Not Resolved]
  - Feeling abnormal [Not Recovered/Not Resolved]
  - Nervous system disorder [Not Recovered/Not Resolved]
